FAERS Safety Report 5957679-2 (Version None)
Quarter: 2008Q4

REPORT INFORMATION
  Report Type: 
  Country: None (occurrence: None)
  Receive Date: 20081119
  Receipt Date: 20081112
  Transmission Date: 20090506
  Serious: Yes (Other)
  Sender: FDA-Public Use
  Company Number: SE-JNJFOC-20081102124

PATIENT
  Age: 30 Year
  Sex: Male

DRUGS (5)
  1. RISPERDAL [Suspect]
     Indication: SCHIZOPHRENIA
     Route: 048
  2. HALDOL [Suspect]
     Indication: DRUG USE FOR UNKNOWN INDICATION
     Route: 065
  3. ACINETON [Concomitant]
     Route: 065
  4. NEPONEX [Concomitant]
     Route: 065
  5. LERGIGAN [Concomitant]
     Route: 065

REACTIONS (2)
  - AKATHISIA [None]
  - URINARY RETENTION [None]
